FAERS Safety Report 8320544-X (Version None)
Quarter: 2012Q2

REPORT INFORMATION
  Report Type: 
  Country: None (occurrence: None)
  Receive Date: 20120430
  Receipt Date: 20120424
  Transmission Date: 20120825
  Serious: Yes (Hospitalization, Other)
  Sender: FDA-Public Use
  Company Number: BR-PFIZER INC-2012029059

PATIENT
  Age: 64 Year
  Sex: Female
  Weight: 66 kg

DRUGS (16)
  1. BUSCOPAN PLUS [Suspect]
     Indication: PAIN
     Dosage: UNK
  2. ACETAMINOPHEN W/ CODEINE [Suspect]
     Indication: PAIN
     Dosage: UNK
  3. MORPHINE [Suspect]
     Dosage: ONE TABLET EVERY 4 HOURS
  4. DIGESAN [Concomitant]
     Dosage: UNK
  5. BUSCOPAN COMP. [Concomitant]
     Indication: PAIN
     Dosage: UNK
  6. SUTENT [Suspect]
     Indication: RENAL CELL CARCINOMA
  7. ACETAMINOPHEN [Suspect]
     Indication: PAIN
     Dosage: UNK
  8. RIFALDIN [Concomitant]
     Dosage: UNK, 2X/DAY
  9. LUFTAL [Concomitant]
     Dosage: UNK
  10. PHENYTOIN [Concomitant]
     Dosage: UNK
  11. NYSTATIN [Concomitant]
     Dosage: UNK
  12. MORPHINE [Suspect]
     Indication: PAIN
     Dosage: A HALF OF ONE TABLET EVERY 4 HOURS
  13. SUTENT [Suspect]
     Indication: METASTATIC RENAL CELL CARCINOMA
     Dosage: 50 MG, 1X/DAY, 4 WEEKS ON/2 WEEKS OFF
     Route: 048
     Dates: start: 20120126
  14. OMEPRAZOLE [Concomitant]
     Dosage: UNK
  15. VITAMIN E [Concomitant]
     Dosage: UNK
  16. SUTENT [Suspect]
     Indication: METASTASES TO SPINE

REACTIONS (28)
  - DYSPNOEA [None]
  - BUCCAL MUCOSAL ROUGHENING [None]
  - DECREASED APPETITE [None]
  - TREMOR [None]
  - TUMOUR PAIN [None]
  - CONSTIPATION [None]
  - BEDRIDDEN [None]
  - APHTHOUS STOMATITIS [None]
  - NAUSEA [None]
  - SKIN DISCOLOURATION [None]
  - NAIL DISCOLOURATION [None]
  - CONVULSION [None]
  - DRUG ABUSE [None]
  - BONE PAIN [None]
  - MALAISE [None]
  - MUSCULAR WEAKNESS [None]
  - FEELING COLD [None]
  - AGEUSIA [None]
  - ABDOMINAL PAIN UPPER [None]
  - BLOOD PRESSURE FLUCTUATION [None]
  - WEIGHT DECREASED [None]
  - PAIN [None]
  - EATING DISORDER [None]
  - NASAL DRYNESS [None]
  - BLOOD PRESSURE INCREASED [None]
  - ABDOMINAL PAIN [None]
  - FATIGUE [None]
  - DYSPHONIA [None]
